FAERS Safety Report 22361785 (Version 3)
Quarter: 2023Q2

REPORT INFORMATION
  Report Type: Report from Study
  Country: US (occurrence: US)
  Receive Date: 20230524
  Receipt Date: 20230621
  Transmission Date: 20230722
  Serious: Yes (Life-Threatening)
  Sender: FDA-Public Use
  Company Number: US-PFIZER INC-PV202300090126

PATIENT
  Age: 62 Year
  Sex: Female
  Weight: 82.54 kg

DRUGS (2)
  1. ABROCITINIB [Suspect]
     Active Substance: ABROCITINIB
     Indication: Dermatitis atopic
     Dosage: 200 MG, DAILY
     Route: 048
     Dates: start: 20200207, end: 20230424
  2. ABROCITINIB [Suspect]
     Active Substance: ABROCITINIB
     Indication: Psoriasis

REACTIONS (1)
  - Hepatic cancer stage III [Not Recovered/Not Resolved]

NARRATIVE: CASE EVENT DATE: 20230427
